FAERS Safety Report 25828365 (Version 1)
Quarter: 2025Q3

REPORT INFORMATION
  Report Type: Spontaneous
  Country: US (occurrence: US)
  Receive Date: 20250921
  Receipt Date: 20250921
  Transmission Date: 20251020
  Serious: Yes (Other)
  Sender: CSL BEHRING
  Company Number: US-BEH-2025219120

PATIENT
  Age: 54 Year
  Sex: Male

DRUGS (6)
  1. HUMAN IMMUNOGLOBULIN G [Suspect]
     Active Substance: HUMAN IMMUNOGLOBULIN G
     Indication: Sarcoidosis
     Route: 042
  2. HUMAN IMMUNOGLOBULIN G [Suspect]
     Active Substance: HUMAN IMMUNOGLOBULIN G
     Indication: Small fibre neuropathy
  3. METHOTREXATE [Concomitant]
     Active Substance: METHOTREXATE
     Indication: Sarcoidosis
  4. METHOTREXATE [Concomitant]
     Active Substance: METHOTREXATE
     Indication: Small fibre neuropathy
  5. INFLIXIMAB [Concomitant]
     Active Substance: INFLIXIMAB
     Indication: Sarcoidosis
  6. INFLIXIMAB [Concomitant]
     Active Substance: INFLIXIMAB
     Indication: Small fibre neuropathy

REACTIONS (3)
  - Meningitis aseptic [Unknown]
  - Drug intolerance [Unknown]
  - Off label use [Unknown]
